FAERS Safety Report 16381387 (Version 1)
Quarter: 2019Q2

REPORT INFORMATION
  Report Type: Report from Study
  Country: None (occurrence: GB)
  Receive Date: 20190603
  Receipt Date: 20190603
  Transmission Date: 20190711
  Serious: Yes (Hospitalization)
  Sender: FDA-Public Use
  Company Number: GB-ABBVIE-19K-167-2803084-00

PATIENT
  Sex: Female

DRUGS (1)
  1. HUMIRA [Suspect]
     Active Substance: ADALIMUMAB
     Indication: CROHN^S DISEASE
     Route: 058
     Dates: start: 20170801

REACTIONS (6)
  - Back pain [Unknown]
  - Exposure during pregnancy [Unknown]
  - Agitation [Unknown]
  - Abdominal pain [Unknown]
  - Gastric disorder [Unknown]
  - Crohn^s disease [Not Recovered/Not Resolved]
